FAERS Safety Report 7501993-6 (Version None)
Quarter: 2011Q2

REPORT INFORMATION
  Report Type: 
  Country: None (occurrence: None)
  Receive Date: 20110517
  Receipt Date: 20110506
  Transmission Date: 20111010
  Serious: Yes (Death)
  Sender: FDA-Public Use
  Company Number: 915726

PATIENT
  Age: 83 Year
  Sex: Male

DRUGS (5)
  1. PROSCAR [Concomitant]
  2. OMEPRAZOLE [Concomitant]
  3. (OMNIC) [Concomitant]
  4. ACETAMINOPHEN [Concomitant]
  5. DOCETAXEL [Suspect]
     Indication: PROSTATE CANCER
     Dosage: INTRAVENOUS (NOT OTHERWISE SPECIFIED)
     Route: 042
     Dates: start: 20100818

REACTIONS (2)
  - HAEMOLYTIC URAEMIC SYNDROME [None]
  - MULTI-ORGAN FAILURE [None]
